FAERS Safety Report 12990592 (Version 3)
Quarter: 2017Q4

REPORT INFORMATION
  Report Type: Spontaneous
  Country: TR (occurrence: TR)
  Receive Date: 20161201
  Receipt Date: 20171219
  Transmission Date: 20180320
  Serious: Yes (Hospitalization, Other)
  Sender: FDA-Public Use
  Company Number: TR-SA-2016SA215532

PATIENT
  Age: 59 Year
  Sex: Female

DRUGS (2)
  1. LEFLUNOMIDE. [Suspect]
     Active Substance: LEFLUNOMIDE
     Indication: RHEUMATOID ARTHRITIS
     Route: 065
  2. PREDNISOLONE. [Suspect]
     Active Substance: PREDNISOLONE
     Indication: RHEUMATOID ARTHRITIS
     Route: 048

REACTIONS (20)
  - Skin turgor decreased [Recovered/Resolved]
  - Body temperature increased [Recovered/Resolved]
  - Gastroenteritis [Recovered/Resolved]
  - Vomiting [Recovered/Resolved]
  - Adrenocortical insufficiency acute [Recovered/Resolved]
  - Asthenia [Recovered/Resolved]
  - Dehydration [Recovered/Resolved]
  - Diarrhoea [Recovered/Resolved]
  - Abdominal tenderness [Recovered/Resolved]
  - Gastrointestinal sounds abnormal [Recovered/Resolved]
  - Blood pressure decreased [Recovered/Resolved]
  - Tongue dry [Recovered/Resolved]
  - Muscle spasms [Recovered/Resolved]
  - Blood creatinine increased [Recovered/Resolved]
  - Amoebiasis [Recovered/Resolved]
  - Nausea [Recovered/Resolved]
  - C-reactive protein increased [Recovered/Resolved]
  - Hypophagia [Recovered/Resolved]
  - Heart rate increased [Recovered/Resolved]
  - Blood urea increased [Recovered/Resolved]
